FAERS Safety Report 8793090 (Version 1)
Quarter: 2012Q4

REPORT INFORMATION
  Report Type: 
  Country: US (occurrence: US)
  Receive Date: 20120917
  Receipt Date: 20120917
  Transmission Date: 20130627
  Serious: Yes (Death, Other)
  Sender: FDA-Public Use
  Company Number: US-PURDUE-USA-2012-0092800

PATIENT
  Age: 48 Year
  Sex: Female

DRUGS (2)
  1. OXYCONTIN TABLETS [Suspect]
     Indication: DRUG ABUSE
     Route: 048
  2. XANAX [Suspect]
     Indication: DRUG ABUSE
     Route: 048

REACTIONS (2)
  - Drug abuse [Unknown]
  - Completed suicide [Fatal]
